FAERS Safety Report 7287624-1 (Version None)
Quarter: 2011Q1

REPORT INFORMATION
  Report Type: 
  Country: None (occurrence: None)
  Receive Date: 20110208
  Receipt Date: 20110208
  Transmission Date: 20110831
  Serious: Yes (Hospitalization)
  Sender: FDA-Public Use
  Company Number: None

PATIENT
  Age: 61 Year
  Sex: Female
  Weight: 94.8925 kg

DRUGS (1)
  1. LANTUS [Suspect]

REACTIONS (8)
  - WHITE BLOOD CELL COUNT INCREASED [None]
  - BLOOD CREATININE INCREASED [None]
  - BLOOD UREA INCREASED [None]
  - CONFUSIONAL STATE [None]
  - HYPOKALAEMIA [None]
  - MYOCLONUS [None]
  - HYPOGLYCAEMIA [None]
  - ASTHENIA [None]
